FAERS Safety Report 11652284 (Version 1)
Quarter: 2015Q4

REPORT INFORMATION
  Report Type: Spontaneous
  Country: US (occurrence: US)
  Receive Date: 20151022
  Receipt Date: 20151022
  Transmission Date: 20160304
  Serious: No
  Sender: FDA-Public Use
  Company Number: US-BIOGENIDEC-2015BI141952

PATIENT
  Age: 44 Year
  Sex: Female

DRUGS (1)
  1. TECFIDERA [Suspect]
     Active Substance: DIMETHYL FUMARATE
     Indication: MULTIPLE SCLEROSIS

REACTIONS (9)
  - Fatigue [Unknown]
  - Paraesthesia [Unknown]
  - Nausea [Unknown]
  - Back pain [Unknown]
  - VIIth nerve paralysis [Unknown]
  - Pain in extremity [Unknown]
  - Multiple sclerosis relapse [Unknown]
  - Malaise [Unknown]
  - Fibromyalgia [Unknown]
